FAERS Safety Report 7298136-3 (Version None)
Quarter: 2011Q1

REPORT INFORMATION
  Report Type: 
  Country: None (occurrence: None)
  Receive Date: 20110214
  Receipt Date: 20110214
  Transmission Date: 20110831
  Serious: No
  Sender: FDA-Public Use
  Company Number: None

PATIENT
  Age: 60 Year
  Sex: Female

DRUGS (1)
  1. VIVELLE-DOT [Suspect]
     Indication: HORMONE REPLACEMENT THERAPY
     Dosage: APPLY 1 PATCH TWICE A WEEK

REACTIONS (1)
  - PRODUCT ADHESION ISSUE [None]
